FAERS Safety Report 16937284 (Version 1)
Quarter: 2019Q4

REPORT INFORMATION
  Report Type: Spontaneous
  Country: GB (occurrence: GB)
  Receive Date: 20191018
  Receipt Date: 20191018
  Transmission Date: 20200122
  Serious: Yes (Death, Other)
  Sender: FDA-Public Use
  Company Number: GB-MYLANLABS-2019M1098483

PATIENT
  Age: 64 Year

DRUGS (4)
  1. IMATINIB. [Suspect]
     Active Substance: IMATINIB MESYLATE
     Indication: ACUTE LYMPHOCYTIC LEUKAEMIA
     Dosage: 400 MILLIGRAM, QD (400 MG, QD)
     Route: 048
  2. IMATINIB. [Interacting]
     Active Substance: IMATINIB MESYLATE
     Dosage: 600 MILLIGRAM, QD
     Route: 048
  3. ASPARAGINASE [Interacting]
     Active Substance: ASPARAGINASE
     Indication: ACUTE LYMPHOCYTIC LEUKAEMIA
     Dosage: 1000 DOSAGE FORM (1000 IU/M2)
     Route: 065
  4. DEXAMETHASONE. [Suspect]
     Active Substance: DEXAMETHASONE
     Indication: ACUTE LYMPHOCYTIC LEUKAEMIA
     Dosage: 6 MILLIGRAM/SQ. METER, QD
     Route: 065

REACTIONS (6)
  - Neutropenic sepsis [Fatal]
  - Pseudomonas infection [Fatal]
  - Respiratory syncytial virus infection [Fatal]
  - Labelled drug-drug interaction medication error [Unknown]
  - Hepatotoxicity [Fatal]
  - Renal failure [Fatal]
